FAERS Safety Report 24798162 (Version 3)
Quarter: 2025Q2

REPORT INFORMATION
  Report Type: Report from Study
  Country: KR (occurrence: KR)
  Receive Date: 20250102
  Receipt Date: 20250618
  Transmission Date: 20250717
  Serious: Yes (Hospitalization, Other)
  Sender: NOVARTIS
  Company Number: KR-002147023-NVSC2024KR171312

PATIENT
  Age: 59 Year
  Sex: Female
  Weight: 46 kg

DRUGS (15)
  1. KISQALI [Suspect]
     Active Substance: RIBOCICLIB SUCCINATE
     Indication: Hormone receptor positive HER2 negative breast cancer
     Dosage: 600 MG, QD
     Route: 048
     Dates: start: 20240228, end: 20240319
  2. KISQALI [Suspect]
     Active Substance: RIBOCICLIB SUCCINATE
     Dosage: 600 MG, QD
     Route: 048
     Dates: start: 20240327, end: 20240416
  3. KISQALI [Suspect]
     Active Substance: RIBOCICLIB SUCCINATE
     Dosage: 600 MG, QD
     Route: 048
     Dates: start: 20240424, end: 20240514
  4. KISQALI [Suspect]
     Active Substance: RIBOCICLIB SUCCINATE
     Dosage: 600 MG, QD
     Route: 048
     Dates: start: 20240522, end: 20240611
  5. KISQALI [Suspect]
     Active Substance: RIBOCICLIB SUCCINATE
     Dosage: 400 MG, QD
     Route: 048
     Dates: start: 20240619, end: 20240709
  6. FASLODEX [Concomitant]
     Active Substance: FULVESTRANT
     Indication: Breast cancer
     Dosage: 500 MG, QD
     Route: 030
     Dates: start: 20240228, end: 20240228
  7. FASLODEX [Concomitant]
     Active Substance: FULVESTRANT
     Dosage: 500 MG, QD
     Route: 030
     Dates: start: 20240327, end: 20240327
  8. FASLODEX [Concomitant]
     Active Substance: FULVESTRANT
     Dosage: 500 MG, QD
     Route: 030
     Dates: start: 20240313, end: 20240313
  9. FASLODEX [Concomitant]
     Active Substance: FULVESTRANT
     Dosage: 500 MG, QD
     Route: 030
     Dates: start: 20240424, end: 20240424
  10. FASLODEX [Concomitant]
     Active Substance: FULVESTRANT
     Dosage: 500 MG, QD
     Route: 030
     Dates: start: 20240619, end: 20240619
  11. Solondo [Concomitant]
     Indication: Dermatomyositis
     Dosage: 5 MG, QD
     Route: 048
     Dates: start: 20230322
  12. PANTOPRAZOLE SODIUM [Concomitant]
     Active Substance: PANTOPRAZOLE SODIUM
     Indication: Prophylaxis
     Dosage: 40 MG, QD
     Route: 048
     Dates: start: 20221230
  13. DESOXIMETASONE [Concomitant]
     Active Substance: DESOXIMETASONE
     Indication: Dermatomyositis
     Route: 065
     Dates: start: 20240207
  14. NEXIUM [Concomitant]
     Active Substance: ESOMEPRAZOLE MAGNESIUM
     Indication: Prophylaxis
     Dosage: 40 MG, QD (IV)
     Route: 042
     Dates: start: 20240612, end: 20240613
  15. Tazoperan [Concomitant]
     Indication: Prophylaxis
     Dosage: 4.5 G, DAY
     Route: 042
     Dates: start: 20240612, end: 20240612

REACTIONS (7)
  - Bicytopenia [Recovered/Resolved]
  - Hypokalaemia [Recovered/Resolved]
  - Pyrexia [Recovered/Resolved]
  - Neutrophil count decreased [Recovered/Resolved]
  - Neutrophil count decreased [Recovered/Resolved]
  - Hypomagnesaemia [Recovered/Resolved]
  - Platelet count decreased [Recovered/Resolved]

NARRATIVE: CASE EVENT DATE: 20240327
